FAERS Safety Report 8283497-9 (Version None)
Quarter: 2012Q2

REPORT INFORMATION
  Report Type: 
  Country: None (occurrence: None)
  Receive Date: 20120413
  Receipt Date: 20120405
  Transmission Date: 20120825
  Serious: Yes (Hospitalization)
  Sender: FDA-Public Use
  Company Number: PHHY2012US016541

PATIENT
  Age: 61 Year
  Sex: Female

DRUGS (8)
  1. FLUOXETINE [Interacting]
     Indication: INSOMNIA
     Dosage: 40 MG/DAY
  2. POLYETHYLENE GLYCOL [Concomitant]
     Dosage: 17 G/DAY
  3. ZOLPIDEM [Concomitant]
     Indication: INSOMNIA
     Dosage: UNK UKN, 5 TO 10 MG/D
  4. BISACODYL [Concomitant]
     Indication: CONSTIPATION
     Dosage: 10 MG, UNK
  5. CLOZAPINE [Suspect]
     Indication: SCHIZOPHRENIA, PARANOID TYPE
     Dosage: 500 MG/DAY
  6. DOCUSATE SODIUM [Concomitant]
     Dosage: 200 MG/DAY
  7. TRAZODONE HCL [Concomitant]
     Dosage: 25 MG/DAY
  8. CLOZAPINE [Interacting]
     Dosage: 300 MG, ((50 MG IN THE MORNING AND 250 MG AT BEDTIME)

REACTIONS (13)
  - DELUSION [None]
  - ABDOMINAL PAIN [None]
  - HALLUCINATION, AUDITORY [None]
  - GASTROINTESTINAL MOTILITY DISORDER [None]
  - NAUSEA [None]
  - VOMITING [None]
  - ABDOMINAL DISTENSION [None]
  - INTESTINAL OBSTRUCTION [None]
  - ABSCESS INTESTINAL [None]
  - PSYCHOTIC DISORDER [None]
  - DRUG INTERACTION [None]
  - INTESTINAL ISCHAEMIA [None]
  - ANTIPSYCHOTIC DRUG LEVEL ABOVE THERAPEUTIC [None]
